FAERS Safety Report 8013554-3 (Version None)
Quarter: 2011Q4

REPORT INFORMATION
  Report Type: 
  Country: None (occurrence: None)
  Receive Date: 20111229
  Receipt Date: 20111220
  Transmission Date: 20120403
  Serious: Yes (Other)
  Sender: FDA-Public Use
  Company Number: US-PURDUE-USA-2011-0080187

PATIENT
  Age: 18 Month
  Sex: Female

DRUGS (1)
  1. OXYCONTIN [Suspect]
     Indication: ACCIDENTAL DRUG INTAKE BY CHILD
     Dosage: 80 MG, SEE TEXT

REACTIONS (2)
  - ACCIDENTAL DRUG INTAKE BY CHILD [None]
  - CYANOSIS [None]
